FAERS Safety Report 9725551 (Version 1)
Quarter: 2013Q4

REPORT INFORMATION
  Report Type: Spontaneous
  Country: US (occurrence: None)
  Receive Date: 20131127
  Receipt Date: 20131127
  Transmission Date: 20140711
  Serious: Yes (Other)
  Sender: FDA-Public Use
  Company Number: 2013P1021354

PATIENT
  Age: 26 Year
  Sex: Male

DRUGS (3)
  1. SUMATRIPTAN [Suspect]
     Indication: MIGRAINE
     Dosage: 6 MG; X1; SC
     Route: 058
  2. UNSPECIFIED OPIOID [Concomitant]
  3. BUTALBITAL ACETAMINOPHEN + CAFFEINE TABLETS [Concomitant]

REACTIONS (1)
  - Autonomic dysreflexia [None]
